FAERS Safety Report 8247206-1 (Version None)
Quarter: 2012Q1

REPORT INFORMATION
  Report Type: 
  Country: None (occurrence: None)
  Receive Date: 20120329
  Receipt Date: 20120329
  Transmission Date: 20120608
  Serious: No
  Sender: FDA-Public Use
  Company Number: None

PATIENT
  Age: 35 Year
  Sex: Female

DRUGS (2)
  1. KEFLEX [Suspect]
     Dates: start: 20100129, end: 20100205
  2. AUGMENTIN '125' [Suspect]
     Dates: start: 20100126, end: 20100126

REACTIONS (6)
  - PRURITUS GENERALISED [None]
  - HEPATITIS VIRAL [None]
  - VOMITING [None]
  - LIVER DISORDER [None]
  - NAUSEA [None]
  - HEPATIC FIBROSIS [None]
